FAERS Safety Report 4324655-5 (Version None)
Quarter: 2004Q1

REPORT INFORMATION
  Report Type: 
  Country: None (occurrence: None)
  Receive Date: 20040322
  Receipt Date: 20040309
  Transmission Date: 20041129
  Serious: Yes (Other)
  Sender: FDA-Public Use
  Company Number: NL-JNJFOC-20031105291

PATIENT
  Sex: Female

DRUGS (4)
  1. REMICADE [Suspect]
     Indication: CROHN'S DISEASE
     Dosage: 5 MG/KG, INTRAVENOUS
     Route: 042
     Dates: start: 20030415, end: 20031016
  2. AZATHIOPRINE [Concomitant]
  3. SALOFALK (AMINOSALICYLIC ACID) [Concomitant]
  4. EFFEXOR [Concomitant]

REACTIONS (1)
  - DISSEMINATED TUBERCULOSIS [None]
